FAERS Safety Report 8977400 (Version 1)
Quarter: 2012Q4

REPORT INFORMATION
  Report Type: 
  Country: FR (occurrence: FR)
  Receive Date: 20121220
  Receipt Date: 20121220
  Transmission Date: 20130627
  Serious: Yes (Hospitalization, Disabling)
  Sender: FDA-Public Use
  Company Number: FR-TEVA-369832ISR

PATIENT
  Age: 40 Year
  Sex: Female

DRUGS (1)
  1. TAMOXIFENE [Suspect]
     Indication: BREAST CANCER
     Dosage: 20 Milligram Daily;
     Route: 048
     Dates: start: 201208, end: 201210

REACTIONS (5)
  - Toxic skin eruption [Not Recovered/Not Resolved]
  - Respiratory disorder [Not Recovered/Not Resolved]
  - Angioedema [Not Recovered/Not Resolved]
  - Reaction to drug excipients [Not Recovered/Not Resolved]
  - Product quality issue [None]
